FAERS Safety Report 15786140 (Version 1)
Quarter: 2019Q1

REPORT INFORMATION
  Report Type: Spontaneous
  Country: US (occurrence: US)
  Receive Date: 20190103
  Receipt Date: 20190103
  Transmission Date: 20190417
  Serious: No
  Sender: FDA-Public Use
  Company Number: US-SA-2018SA394110

PATIENT
  Sex: Male

DRUGS (1)
  1. SELSUN BLUE NATURALS ITCHY, DRY SCALP [Suspect]
     Active Substance: SALICYLIC ACID
     Dosage: UNK
     Dates: start: 20181204

REACTIONS (1)
  - Drug ineffective [Unknown]

NARRATIVE: CASE EVENT DATE: 201812
